FAERS Safety Report 17033853 (Version 1)
Quarter: 2019Q4

REPORT INFORMATION
  Report Type: Spontaneous
  Country: US (occurrence: US)
  Receive Date: 20191015
  Receipt Date: 20191015
  Transmission Date: 20200122
  Serious: Yes (Hospitalization)
  Sender: FDA-Public Use
  Company Number: None

PATIENT
  Age: 81 Year
  Sex: Male
  Weight: 62 kg

DRUGS (1)
  1. IMATINIB. [Suspect]
     Active Substance: IMATINIB MESYLATE
     Indication: CHRONIC MYELOID LEUKAEMIA
     Route: 048
     Dates: start: 20190911, end: 20191002

REACTIONS (6)
  - Hypotension [None]
  - Diarrhoea [None]
  - Hypovolaemic shock [None]
  - Dehydration [None]
  - Atrial fibrillation [None]
  - Acute kidney injury [None]

NARRATIVE: CASE EVENT DATE: 20191003
